FAERS Safety Report 4348312-4 (Version None)
Quarter: 2004Q2

REPORT INFORMATION
  Report Type: 
  Country: None (occurrence: None)
  Receive Date: 20040422
  Receipt Date: 20040412
  Transmission Date: 20050107
  Serious: Yes (Other)
  Sender: FDA-Public Use
  Company Number: 2004025311

PATIENT
  Age: 52 Year
  Sex: Female

DRUGS (3)
  1. ATORVASTATIN (ATORVASTATIN) [Suspect]
     Indication: DYSLIPIDAEMIA
     Dosage: 10 MG (DAILY), ORAL
     Route: 048
     Dates: start: 20030601, end: 20040330
  2. TRIFOLIUM PRATENSE L (TRIFOLIUM PRATENSE L.) [Concomitant]
  3. BROMAZEPAM (BROMAZEPAM) [Concomitant]

REACTIONS (4)
  - MUSCLE ATROPHY [None]
  - PAIN [None]
  - PAIN IN EXTREMITY [None]
  - TRANSAMINASES INCREASED [None]
